FAERS Safety Report 9179045 (Version 3)
Quarter: 2017Q3

REPORT INFORMATION
  Report Type: Report from Study
  Country: FR (occurrence: FR)
  Receive Date: 20130321
  Receipt Date: 20170905
  Transmission Date: 20171128
  Serious: Yes (Other)
  Sender: FDA-Public Use
  Company Number: FR-ROCHE-1203218

PATIENT

DRUGS (4)
  1. BEVACIZUMAB. [Suspect]
     Active Substance: BEVACIZUMAB
     Indication: NEOPLASM
     Route: 065
  2. PAZOPANIB [Suspect]
     Active Substance: PAZOPANIB
     Indication: METASTATIC RENAL CELL CARCINOMA
  3. BEVACIZUMAB. [Suspect]
     Active Substance: BEVACIZUMAB
     Indication: METASTATIC RENAL CELL CARCINOMA
  4. PAZOPANIB [Suspect]
     Active Substance: PAZOPANIB
     Indication: NEOPLASM
     Dosage: 400, 600 OR 800 MG PER DAY ACCORDING TO THE DOSE LEVEL PLAN
     Route: 065

REACTIONS (25)
  - Hypertension [Unknown]
  - Palmar-plantar erythrodysaesthesia syndrome [Unknown]
  - Venous thrombosis [Unknown]
  - Alanine aminotransferase increased [Unknown]
  - Fatigue [Unknown]
  - Pulmonary embolism [Unknown]
  - Microangiopathic haemolytic anaemia [Unknown]
  - Abdominal pain [Unknown]
  - Confusional state [Unknown]
  - Post procedural haemorrhage [Unknown]
  - Thrombocytopenia [Unknown]
  - Musculoskeletal chest pain [Unknown]
  - Hypernatraemia [Unknown]
  - Pyelonephritis [Unknown]
  - Aspartate aminotransferase increased [Unknown]
  - Urinary tract infection [Unknown]
  - Lipase increased [Unknown]
  - Diarrhoea [Unknown]
  - Vomiting [Unknown]
  - Microangiopathy [Unknown]
  - Thrombotic microangiopathy [Unknown]
  - Anal abscess [Unknown]
  - Proteinuria [Unknown]
  - Neutropenia [Unknown]
  - Seizure [Unknown]
